FAERS Safety Report 17287451 (Version 1)
Quarter: 2020Q1

REPORT INFORMATION
  Report Type: Spontaneous
  Country: US (occurrence: US)
  Receive Date: 20191231
  Receipt Date: 20191231
  Transmission Date: 20200409
  Serious: Yes (Hospitalization)
  Sender: FDA-Public Use
  Company Number: None

PATIENT
  Age: 35 Month
  Sex: Male

DRUGS (11)
  1. TOPAMAX [Concomitant]
     Active Substance: TOPIRAMATE
  2. SODIUM CHLOR NEB [Concomitant]
  3. ALBUTEROL. [Concomitant]
     Active Substance: ALBUTEROL
  4. MOTRIN INFAN DROPS [Concomitant]
  5. TYLENOL INF SUS [Concomitant]
  6. KLONOPIN [Concomitant]
     Active Substance: CLONAZEPAM
  7. AUGMENTIN [Concomitant]
     Active Substance: AMOXICILLIN\CLAVULANATE POTASSIUM
  8. PRAVACID [Concomitant]
  9. VIGABATRIN500 MG PWD [Suspect]
     Active Substance: VIGABATRIN
     Indication: EPILEPSY
     Route: 048
     Dates: start: 20190408
  10. VIMPAT [Concomitant]
     Active Substance: LACOSAMIDE
  11. SABRIL [Concomitant]
     Active Substance: VIGABATRIN

REACTIONS (1)
  - Gastrostomy tube removal [None]

NARRATIVE: CASE EVENT DATE: 20191227
